FAERS Safety Report 8418054-4 (Version None)
Quarter: 2012Q2

REPORT INFORMATION
  Report Type: 
  Country: None (occurrence: None)
  Receive Date: 20120604
  Receipt Date: 20120604
  Transmission Date: 20120825
  Serious: Yes (Other)
  Sender: FDA-Public Use
  Company Number: None

PATIENT
  Sex: Female
  Weight: 124.2856 kg

DRUGS (1)
  1. GEODON [Suspect]
     Dosage: 80MG 1-BID BY MOUTH
     Route: 048
     Dates: start: 20120304, end: 20120502

REACTIONS (2)
  - PRODUCT SUBSTITUTION ISSUE [None]
  - DRUG INEFFECTIVE [None]
